FAERS Safety Report 5972748-9 (Version None)
Quarter: 2008Q4

REPORT INFORMATION
  Report Type: 
  Country: None (occurrence: None)
  Receive Date: 20081126
  Receipt Date: 20081126
  Transmission Date: 20090506
  Serious: Yes (Other)
  Sender: FDA-Public Use
  Company Number: None

PATIENT
  Age: 53 Year
  Sex: Male
  Weight: 107.3 kg

DRUGS (1)
  1. VARENICLINE 1MG [Suspect]
     Indication: SMOKING CESSATION THERAPY
     Dosage: VARENICLINE TWICE DAILY PO
     Route: 048
     Dates: start: 20080904, end: 20081023

REACTIONS (2)
  - ABNORMAL DREAMS [None]
  - FATIGUE [None]
